FAERS Safety Report 9258293 (Version 1)
Quarter: 2013Q2

REPORT INFORMATION
  Report Type: Spontaneous
  Country: US (occurrence: None)
  Receive Date: 20130424
  Receipt Date: 20130424
  Transmission Date: 20140414
  Serious: Yes (Life-Threatening, Hospitalization)
  Sender: FDA-Public Use
  Company Number: None

PATIENT
  Age: 72 Year
  Sex: Male
  Weight: 92.08 kg

DRUGS (1)
  1. INDAPAMIDE [Suspect]
     Indication: HYPERTENSION

REACTIONS (2)
  - Presyncope [None]
  - Blood potassium decreased [None]
